FAERS Safety Report 5149653-3 (Version None)
Quarter: 2006Q4

REPORT INFORMATION
  Report Type: 
  Country: None (occurrence: None)
  Receive Date: 20061113
  Receipt Date: 20061108
  Transmission Date: 20070319
  Serious: Yes (Other)
  Sender: FDA-Public Use
  Company Number: US-JNJFOC-20060701075

PATIENT
  Sex: Male
  Weight: 70.31 kg

DRUGS (45)
  1. INFLIXIMAB [Suspect]
     Route: 042
  2. INFLIXIMAB [Suspect]
     Route: 042
  3. INFLIXIMAB [Suspect]
     Route: 042
  4. INFLIXIMAB [Suspect]
     Route: 042
  5. INFLIXIMAB [Suspect]
     Route: 042
  6. INFLIXIMAB [Suspect]
     Route: 042
  7. INFLIXIMAB [Suspect]
     Route: 042
  8. INFLIXIMAB [Suspect]
     Route: 042
  9. INFLIXIMAB [Suspect]
     Route: 042
  10. INFLIXIMAB [Suspect]
     Route: 042
  11. INFLIXIMAB [Suspect]
     Route: 042
  12. INFLIXIMAB [Suspect]
     Route: 042
  13. INFLIXIMAB [Suspect]
     Route: 042
  14. INFLIXIMAB [Suspect]
     Route: 042
  15. INFLIXIMAB [Suspect]
     Route: 042
  16. INFLIXIMAB [Suspect]
     Route: 042
  17. INFLIXIMAB [Suspect]
     Route: 042
  18. INFLIXIMAB [Suspect]
     Route: 042
  19. INFLIXIMAB [Suspect]
     Route: 042
  20. INFLIXIMAB [Suspect]
     Route: 042
  21. INFLIXIMAB [Suspect]
     Route: 042
  22. INFLIXIMAB [Suspect]
     Route: 042
  23. INFLIXIMAB [Suspect]
     Route: 042
  24. INFLIXIMAB [Suspect]
     Route: 042
  25. INFLIXIMAB [Suspect]
     Route: 042
  26. INFLIXIMAB [Suspect]
     Route: 042
  27. INFLIXIMAB [Suspect]
     Route: 042
  28. INFLIXIMAB [Suspect]
     Route: 042
  29. INFLIXIMAB [Suspect]
     Route: 042
  30. INFLIXIMAB [Suspect]
     Route: 042
  31. INFLIXIMAB [Suspect]
     Route: 042
  32. INFLIXIMAB [Suspect]
     Route: 042
  33. INFLIXIMAB [Suspect]
     Route: 042
  34. INFLIXIMAB [Suspect]
     Route: 042
  35. INFLIXIMAB [Suspect]
     Route: 042
  36. INFLIXIMAB [Suspect]
     Route: 042
  37. INFLIXIMAB [Suspect]
     Route: 042
  38. INFLIXIMAB [Suspect]
     Route: 042
  39. INFLIXIMAB [Suspect]
     Route: 042
  40. INFLIXIMAB [Suspect]
     Route: 042
  41. INFLIXIMAB [Suspect]
     Route: 042
  42. INFLIXIMAB [Suspect]
     Route: 042
  43. INFLIXIMAB [Suspect]
     Indication: CROHN'S DISEASE
     Dosage: 7 INFUSIONS ON UNSPECIFIED DATES PRIOR TO BASELINE
     Route: 042
  44. METHOTREXATE [Suspect]
     Indication: CROHN'S DISEASE
  45. MESALAMINE [Suspect]
     Indication: CROHN'S DISEASE

REACTIONS (2)
  - BASAL CELL CARCINOMA [None]
  - SQUAMOUS CELL CARCINOMA OF SKIN [None]
